FAERS Safety Report 26108816 (Version 2)
Quarter: 2025Q4

REPORT INFORMATION
  Report Type: Report from Study
  Country: PK (occurrence: PK)
  Receive Date: 20251201
  Receipt Date: 20251209
  Transmission Date: 20260117
  Serious: Yes (Other)
  Sender: MYLAN
  Company Number: PK-MYLANLABS-2025M1101613

PATIENT
  Age: 69 Year
  Sex: Male
  Weight: 86 kg

DRUGS (76)
  1. NITROGLYCERIN [Interacting]
     Active Substance: NITROGLYCERIN
     Indication: Hypertension
     Dosage: UNK
  2. NITROGLYCERIN [Interacting]
     Active Substance: NITROGLYCERIN
     Indication: Myocardial ischaemia
     Dosage: UNK
     Route: 065
  3. NITROGLYCERIN [Interacting]
     Active Substance: NITROGLYCERIN
     Dosage: UNK
     Route: 065
  4. NITROGLYCERIN [Interacting]
     Active Substance: NITROGLYCERIN
     Dosage: UNK
  5. CELECOXIB [Interacting]
     Active Substance: CELECOXIB
     Indication: Analgesic therapy
     Dosage: 200 MILLIGRAM, AT BED TIME, PRN
     Route: 048
     Dates: start: 20230419
  6. CELECOXIB [Interacting]
     Active Substance: CELECOXIB
     Dosage: 200 MILLIGRAM, AT BED TIME, PRN
     Dates: start: 20230419
  7. CELECOXIB [Interacting]
     Active Substance: CELECOXIB
     Dosage: 200 MILLIGRAM, AT BED TIME, PRN
     Dates: start: 20230419
  8. CELECOXIB [Interacting]
     Active Substance: CELECOXIB
     Dosage: 200 MILLIGRAM, AT BED TIME, PRN
     Route: 048
     Dates: start: 20230419
  9. CELECOXIB [Interacting]
     Active Substance: CELECOXIB
     Dosage: 200 MILLIGRAM, HS (RE-ADJUSTED)
     Route: 048
  10. CELECOXIB [Interacting]
     Active Substance: CELECOXIB
     Dosage: 200 MILLIGRAM, HS (RE-ADJUSTED)
  11. CELECOXIB [Interacting]
     Active Substance: CELECOXIB
     Dosage: 200 MILLIGRAM, HS (RE-ADJUSTED)
  12. CELECOXIB [Interacting]
     Active Substance: CELECOXIB
     Dosage: 200 MILLIGRAM, HS (RE-ADJUSTED)
     Route: 048
  13. CELECOXIB [Interacting]
     Active Substance: CELECOXIB
     Dosage: UNK, DOSE REDUCED
     Route: 048
  14. CELECOXIB [Interacting]
     Active Substance: CELECOXIB
     Dosage: UNK, DOSE REDUCED
     Route: 048
  15. CELECOXIB [Interacting]
     Active Substance: CELECOXIB
     Dosage: UNK, DOSE REDUCED
  16. CELECOXIB [Interacting]
     Active Substance: CELECOXIB
     Dosage: UNK, DOSE REDUCED
  17. PREGABALIN [Interacting]
     Active Substance: PREGABALIN
     Indication: Analgesic therapy
     Dosage: 75 MILLIGRAM, BID
     Dates: start: 20230419
  18. PREGABALIN [Interacting]
     Active Substance: PREGABALIN
     Dosage: 75 MILLIGRAM, BID
     Dates: start: 20230419
  19. PREGABALIN [Interacting]
     Active Substance: PREGABALIN
     Dosage: 75 MILLIGRAM, BID
     Route: 048
     Dates: start: 20230419
  20. PREGABALIN [Interacting]
     Active Substance: PREGABALIN
     Dosage: 75 MILLIGRAM, BID
     Route: 048
     Dates: start: 20230419
  21. PREGABALIN [Interacting]
     Active Substance: PREGABALIN
     Dosage: UNK, DOSE REDUCED
  22. PREGABALIN [Interacting]
     Active Substance: PREGABALIN
     Dosage: UNK, DOSE REDUCED
  23. PREGABALIN [Interacting]
     Active Substance: PREGABALIN
     Dosage: UNK, DOSE REDUCED
     Route: 065
  24. PREGABALIN [Interacting]
     Active Substance: PREGABALIN
     Dosage: UNK, DOSE REDUCED
     Route: 065
  25. INSULIN GLULISINE [Interacting]
     Active Substance: INSULIN GLULISINE
     Indication: Diabetes mellitus
     Dosage: 30 INTERNATIONAL UNIT; SUBCUTANEOUSLY BEFORE BREAKFAST AND DINNER
  26. INSULIN GLULISINE [Interacting]
     Active Substance: INSULIN GLULISINE
     Dosage: 30 INTERNATIONAL UNIT; SUBCUTANEOUSLY BEFORE BREAKFAST AND DINNER
     Route: 058
  27. INSULIN GLULISINE [Interacting]
     Active Substance: INSULIN GLULISINE
     Dosage: 30 INTERNATIONAL UNIT; SUBCUTANEOUSLY BEFORE BREAKFAST AND DINNER
     Route: 058
  28. INSULIN GLULISINE [Interacting]
     Active Substance: INSULIN GLULISINE
     Dosage: 30 INTERNATIONAL UNIT; SUBCUTANEOUSLY BEFORE BREAKFAST AND DINNER
  29. DAPAGLIFLOZIN [Interacting]
     Active Substance: DAPAGLIFLOZIN
     Indication: Diabetes mellitus
     Dosage: 5 MILLIGRAM, QD
     Dates: start: 20230419
  30. DAPAGLIFLOZIN [Interacting]
     Active Substance: DAPAGLIFLOZIN
     Dosage: 5 MILLIGRAM, QD
     Route: 048
     Dates: start: 20230419
  31. DAPAGLIFLOZIN [Interacting]
     Active Substance: DAPAGLIFLOZIN
     Dosage: 5 MILLIGRAM, QD
     Route: 048
     Dates: start: 20230419
  32. DAPAGLIFLOZIN [Interacting]
     Active Substance: DAPAGLIFLOZIN
     Dosage: 5 MILLIGRAM, QD
     Dates: start: 20230419
  33. METFORMIN HYDROCHLORIDE [Interacting]
     Active Substance: METFORMIN HYDROCHLORIDE
     Indication: Diabetes mellitus
     Dosage: 750 MILLIGRAM, QD
     Dates: start: 20230419
  34. METFORMIN HYDROCHLORIDE [Interacting]
     Active Substance: METFORMIN HYDROCHLORIDE
     Dosage: 750 MILLIGRAM, QD
     Route: 048
     Dates: start: 20230419
  35. METFORMIN HYDROCHLORIDE [Interacting]
     Active Substance: METFORMIN HYDROCHLORIDE
     Dosage: 750 MILLIGRAM, QD
     Route: 048
     Dates: start: 20230419
  36. METFORMIN HYDROCHLORIDE [Interacting]
     Active Substance: METFORMIN HYDROCHLORIDE
     Dosage: 750 MILLIGRAM, QD
     Dates: start: 20230419
  37. NEBIVOLOL [Interacting]
     Active Substance: NEBIVOLOL
     Indication: Hypertension
     Dosage: 5 MILLIGRAM
  38. NEBIVOLOL [Interacting]
     Active Substance: NEBIVOLOL
     Indication: Myocardial ischaemia
     Dosage: 5 MILLIGRAM
     Route: 048
  39. NEBIVOLOL [Interacting]
     Active Substance: NEBIVOLOL
     Dosage: 5 MILLIGRAM
     Route: 048
  40. NEBIVOLOL [Interacting]
     Active Substance: NEBIVOLOL
     Dosage: 5 MILLIGRAM
  41. ASPIRIN [Interacting]
     Active Substance: ASPIRIN
     Indication: Analgesic therapy
     Dosage: 75 MILLIGRAM, QD
     Dates: start: 20230419
  42. ASPIRIN [Interacting]
     Active Substance: ASPIRIN
     Dosage: 75 MILLIGRAM, QD
     Dates: start: 20230419
  43. ASPIRIN [Interacting]
     Active Substance: ASPIRIN
     Dosage: 75 MILLIGRAM, QD
     Route: 048
     Dates: start: 20230419
  44. ASPIRIN [Interacting]
     Active Substance: ASPIRIN
     Dosage: 75 MILLIGRAM, QD
     Route: 048
     Dates: start: 20230419
  45. ASPIRIN [Interacting]
     Active Substance: ASPIRIN
     Dosage: 75 MILLIGRAM, QD (RE-ADJUSTED)
  46. ASPIRIN [Interacting]
     Active Substance: ASPIRIN
     Dosage: 75 MILLIGRAM, QD (RE-ADJUSTED)
  47. ASPIRIN [Interacting]
     Active Substance: ASPIRIN
     Dosage: 75 MILLIGRAM, QD (RE-ADJUSTED)
     Route: 048
  48. ASPIRIN [Interacting]
     Active Substance: ASPIRIN
     Dosage: 75 MILLIGRAM, QD (RE-ADJUSTED)
     Route: 048
  49. TAPENTADOL [Interacting]
     Active Substance: TAPENTADOL
     Indication: Analgesic therapy
     Dosage: 75 MILLIGRAM, BID
     Dates: start: 20230419
  50. TAPENTADOL [Interacting]
     Active Substance: TAPENTADOL
     Dosage: 75 MILLIGRAM, BID
     Dates: start: 20230419
  51. TAPENTADOL [Interacting]
     Active Substance: TAPENTADOL
     Dosage: 75 MILLIGRAM, BID
     Route: 048
     Dates: start: 20230419
  52. TAPENTADOL [Interacting]
     Active Substance: TAPENTADOL
     Dosage: 75 MILLIGRAM, BID
     Route: 048
     Dates: start: 20230419
  53. TAPENTADOL [Interacting]
     Active Substance: TAPENTADOL
     Dosage: UNK, DOSE REDUCED
  54. TAPENTADOL [Interacting]
     Active Substance: TAPENTADOL
     Dosage: UNK, DOSE REDUCED
  55. TAPENTADOL [Interacting]
     Active Substance: TAPENTADOL
     Dosage: UNK, DOSE REDUCED
     Route: 065
  56. TAPENTADOL [Interacting]
     Active Substance: TAPENTADOL
     Dosage: UNK, DOSE REDUCED
     Route: 065
  57. TAPENTADOL [Interacting]
     Active Substance: TAPENTADOL
     Dosage: 75 MILLIGRAM, BID (RE-ADJUSTED)
  58. TAPENTADOL [Interacting]
     Active Substance: TAPENTADOL
     Dosage: 75 MILLIGRAM, BID (RE-ADJUSTED)
     Route: 048
  59. TAPENTADOL [Interacting]
     Active Substance: TAPENTADOL
     Dosage: 75 MILLIGRAM, BID (RE-ADJUSTED)
  60. TAPENTADOL [Interacting]
     Active Substance: TAPENTADOL
     Dosage: 75 MILLIGRAM, BID (RE-ADJUSTED)
     Route: 048
  61. ACETAMINOPHEN [Interacting]
     Active Substance: ACETAMINOPHEN
     Indication: Analgesic therapy
     Dosage: 1000 MILLIGRAM, Q6H
     Dates: start: 20230419
  62. ACETAMINOPHEN [Interacting]
     Active Substance: ACETAMINOPHEN
     Dosage: 1000 MILLIGRAM, Q6H
     Route: 048
     Dates: start: 20230419
  63. ACETAMINOPHEN [Interacting]
     Active Substance: ACETAMINOPHEN
     Dosage: 1000 MILLIGRAM, Q6H
     Route: 048
     Dates: start: 20230419
  64. ACETAMINOPHEN [Interacting]
     Active Substance: ACETAMINOPHEN
     Dosage: 1000 MILLIGRAM, Q6H
     Dates: start: 20230419
  65. ACETAMINOPHEN [Interacting]
     Active Substance: ACETAMINOPHEN
     Dosage: UNK, DOSE REDUCED
  66. ACETAMINOPHEN [Interacting]
     Active Substance: ACETAMINOPHEN
     Dosage: UNK, DOSE REDUCED
     Route: 048
  67. ACETAMINOPHEN [Interacting]
     Active Substance: ACETAMINOPHEN
     Dosage: UNK, DOSE REDUCED
  68. ACETAMINOPHEN [Interacting]
     Active Substance: ACETAMINOPHEN
     Dosage: UNK, DOSE REDUCED
     Route: 048
  69. ACETAMINOPHEN [Interacting]
     Active Substance: ACETAMINOPHEN
     Dosage: 1000 MILLIGRAM, PRN
     Route: 048
  70. ACETAMINOPHEN [Interacting]
     Active Substance: ACETAMINOPHEN
     Dosage: 1000 MILLIGRAM, PRN
     Route: 048
  71. ACETAMINOPHEN [Interacting]
     Active Substance: ACETAMINOPHEN
     Dosage: 1000 MILLIGRAM, PRN
  72. ACETAMINOPHEN [Interacting]
     Active Substance: ACETAMINOPHEN
     Dosage: 1000 MILLIGRAM, PRN
  73. ATORVASTATIN [Concomitant]
     Active Substance: ATORVASTATIN
     Indication: Dyslipidaemia
     Dosage: UNK
  74. ATORVASTATIN [Concomitant]
     Active Substance: ATORVASTATIN
     Dosage: UNK
     Route: 065
  75. ATORVASTATIN [Concomitant]
     Active Substance: ATORVASTATIN
     Dosage: UNK
     Route: 065
  76. ATORVASTATIN [Concomitant]
     Active Substance: ATORVASTATIN
     Dosage: UNK

REACTIONS (2)
  - Drug interaction [Recovered/Resolved]
  - Hypoglycaemia [Recovered/Resolved]
